FAERS Safety Report 7365808-1 (Version None)
Quarter: 2011Q1

REPORT INFORMATION
  Report Type: 
  Country: None (occurrence: None)
  Receive Date: 20110322
  Receipt Date: 20110314
  Transmission Date: 20110831
  Serious: Yes (Other)
  Sender: FDA-Public Use
  Company Number: US-US-EMD SERONO, INC.-7039008

PATIENT
  Sex: Male
  Weight: 79 kg

DRUGS (4)
  1. REBIF [Suspect]
     Indication: MULTIPLE SCLEROSIS
     Route: 058
     Dates: start: 20101219, end: 20110201
  2. MULTI-VITAMIN [Concomitant]
  3. ZYRTEC [Concomitant]
     Indication: HYPERSENSITIVITY
  4. FISH OIL [Concomitant]

REACTIONS (6)
  - ORAL HERPES [None]
  - SUICIDAL IDEATION [None]
  - DEPRESSION [None]
  - NIGHT SWEATS [None]
  - INJECTION SITE REACTION [None]
  - DISSOCIATIVE IDENTITY DISORDER [None]
